FAERS Safety Report 13473088 (Version 2)
Quarter: 2017Q2

REPORT INFORMATION
  Report Type: Spontaneous
  Country: US (occurrence: US)
  Receive Date: 20170424
  Receipt Date: 20170531
  Transmission Date: 20170830
  Serious: No
  Sender: FDA-Public Use
  Company Number: US-JNJFOC-20170418956

PATIENT
  Age: 92 Year
  Sex: Female
  Weight: 72.58 kg

DRUGS (2)
  1. TYLENOL 8 HR ARTHRITIS PAIN [Suspect]
     Active Substance: ACETAMINOPHEN
     Route: 048
  2. TYLENOL 8 HR ARTHRITIS PAIN [Suspect]
     Active Substance: ACETAMINOPHEN
     Indication: ARTHRALGIA
     Dosage: ONE IN THE MORNING ABOUT 9A.M. THEN ANOTHER IF I GO OUT AT ABOUT 1P.M.-2P.M.
     Route: 048
     Dates: start: 20170402

REACTIONS (3)
  - Drug ineffective [Unknown]
  - Abdominal pain upper [Recovered/Resolved]
  - Inappropriate schedule of drug administration [Unknown]

NARRATIVE: CASE EVENT DATE: 20170402
